FAERS Safety Report 5847133-0 (Version None)
Quarter: 2008Q3

REPORT INFORMATION
  Report Type: 
  Country: None (occurrence: None)
  Receive Date: 20080815
  Receipt Date: 20080805
  Transmission Date: 20090109
  Serious: Yes (Other)
  Sender: FDA-Public Use
  Company Number: PHEH2008US06874

PATIENT
  Age: 52 Year
  Sex: Female
  Weight: 131.97 kg

DRUGS (4)
  1. RECLAST [Suspect]
     Indication: OSTEOPOROSIS
     Dosage: ONCE YEARLY
     Route: 042
     Dates: start: 20080731
  2. VITAMIN B-12 [Concomitant]
  3. LEVOTHYROXINE SODIUM [Concomitant]
  4. VITAMIN D [Concomitant]

REACTIONS (5)
  - EYE INFLAMMATION [None]
  - EYE PAIN [None]
  - FACIAL PALSY [None]
  - HEADACHE [None]
  - PYREXIA [None]
